FAERS Safety Report 5417887-6 (Version None)
Quarter: 2007Q3

REPORT INFORMATION
  Report Type: 
  Country: None (occurrence: None)
  Receive Date: 20070817
  Receipt Date: 20060425
  Transmission Date: 20080115
  Serious: Yes (Hospitalization)
  Sender: FDA-Public Use
  Company Number: US-JNJFOC-20070803148

PATIENT
  Age: 60 Year
  Sex: Female

DRUGS (9)
  1. FAMOTIDINE [Suspect]
  2. FAMOTIDINE [Suspect]
     Indication: DRUG USE FOR UNKNOWN INDICATION
  3. DEXAMETHASONE 0.5MG TAB [Concomitant]
  4. PROZAC [Concomitant]
  5. PERCOCET [Concomitant]
  6. DILTIAZEM [Concomitant]
  7. THEOPHYLLINE [Concomitant]
  8. CIPROFLOXACIN [Concomitant]
  9. ALBUTEROL [Concomitant]

REACTIONS (1)
  - ACUTE GENERALISED EXANTHEMATOUS PUSTULOSIS [None]
